FAERS Safety Report 18724425 (Version 2)
Quarter: 2021Q1

REPORT INFORMATION
  Report Type: Spontaneous
  Country: US (occurrence: US)
  Receive Date: 20210111
  Receipt Date: 20210218
  Transmission Date: 20210419
  Serious: No
  Sender: FDA-Public Use
  Company Number: US-PFIZER INC-2021008637

PATIENT
  Age: 64 Year
  Sex: Male
  Weight: 80.73 kg

DRUGS (3)
  1. MEROPENEM. [Suspect]
     Active Substance: MEROPENEM
     Indication: LIVER ABSCESS
  2. MEROPENEM. [Suspect]
     Active Substance: MEROPENEM
     Indication: BACTERIAL SEPSIS
     Dosage: UNK (RX DOSE IN ER)
     Route: 042
     Dates: start: 20180905, end: 20180906
  3. MEROPENEM. [Suspect]
     Active Substance: MEROPENEM
     Indication: GALLBLADDER ABSCESS

REACTIONS (2)
  - Drug hypersensitivity [Recovered/Resolved]
  - Blister [Recovered/Resolved]

NARRATIVE: CASE EVENT DATE: 20180906
